FAERS Safety Report 11878169 (Version 1)
Quarter: 2015Q4

REPORT INFORMATION
  Report Type: Spontaneous
  Country: US (occurrence: None)
  Receive Date: 20151229
  Receipt Date: 20151229
  Transmission Date: 20160305
  Serious: No
  Sender: FDA-Public Use
  Company Number: None

PATIENT
  Age: 14 Year
  Sex: Male

DRUGS (7)
  1. FOLIC ACID. [Concomitant]
     Active Substance: FOLIC ACID
  2. METHTREXATE [Concomitant]
  3. ZOFRAN [Concomitant]
     Active Substance: ONDANSETRON HYDROCHLORIDE
  4. ENBREL [Suspect]
     Active Substance: ETANERCEPT
     Indication: JUVENILE IDIOPATHIC ARTHRITIS
     Route: 058
     Dates: start: 201510
  5. LIDO/PRILOCN [Concomitant]
  6. ONDANSETRON [Concomitant]
     Active Substance: ONDANSETRON
  7. FERROUS SULF [Concomitant]

REACTIONS (2)
  - Fatigue [None]
  - Influenza like illness [None]

NARRATIVE: CASE EVENT DATE: 201512
